FAERS Safety Report 4299017-X (Version None)
Quarter: 2004Q1

REPORT INFORMATION
  Report Type: 
  Country: None (occurrence: None)
  Receive Date: 20040217
  Receipt Date: 20040206
  Transmission Date: 20041129
  Serious: Yes (Hospitalization)
  Sender: FDA-Public Use
  Company Number: 04P-087-0249745-00

PATIENT

DRUGS (7)
  1. ISOPTIN [Suspect]
     Dosage: 102 DOSAGE FORMS, PER ORAL
     Route: 048
  2. BROMAZEPAM [Suspect]
     Dosage: 69 DOSAGE FORMS
  3. AMEZINIUM METILSULFATE [Concomitant]
  4. BISOPROLOL FUMARATE [Concomitant]
  5. PROPRANOLOL HYDROCHLORIDE [Concomitant]
  6. CETIRIZINE HYDROCHLORIDE [Concomitant]
  7. FLUVOXAMINE MALEATE [Concomitant]

REACTIONS (3)
  - DIALYSIS [None]
  - HYPOTENSION [None]
  - PO2 DECREASED [None]
